FAERS Safety Report 7941465-8 (Version None)
Quarter: 2011Q4

REPORT INFORMATION
  Report Type: 
  Country: None (occurrence: None)
  Receive Date: 20111128
  Receipt Date: 20111117
  Transmission Date: 20120403
  Serious: Yes (Life-Threatening, Hospitalization)
  Sender: FDA-Public Use
  Company Number: FR-UCBSA-024277

PATIENT
  Age: 22 Year
  Sex: Female

DRUGS (33)
  1. KEPPRA [Suspect]
     Indication: EPILEPSY
     Route: 042
     Dates: start: 20100902, end: 20101003
  2. ISUPREL [Concomitant]
     Dates: start: 20100902, end: 20100903
  3. EFFEXOR [Concomitant]
     Dates: start: 20100903, end: 20101001
  4. FOLDINE [Concomitant]
     Dates: start: 20100918, end: 20100929
  5. LEVOTHYROXINE SODIUM [Concomitant]
     Dates: start: 20091107, end: 20100915
  6. ACETAMINOPHEN [Concomitant]
     Dates: start: 20100903, end: 20100909
  7. SPECIALFOLDINE [Suspect]
     Dosage: DOSE: UNKNOWN
     Dates: start: 20100918, end: 20100929
  8. LEXOMIL [Concomitant]
     Indication: AGITATION
     Dates: start: 20100929
  9. ACTRAPID [Concomitant]
     Dates: start: 20100903, end: 20100919
  10. DAFFALGAN [Concomitant]
     Dates: start: 20100916, end: 20101002
  11. ORBENIN CAP [Concomitant]
     Dates: start: 20100902, end: 20100918
  12. FERROUS SULFATE TAB [Suspect]
     Dates: start: 20100918, end: 20100929
  13. MORPHINE [Concomitant]
     Dates: start: 20100918, end: 20100922
  14. ETOMIDATE [Concomitant]
     Dates: start: 20100902, end: 20100918
  15. LOXAPINE HCL [Suspect]
     Indication: AGITATION
     Route: 042
     Dates: start: 20100913, end: 20101003
  16. DIPRIVAN [Concomitant]
     Dates: start: 20100902, end: 20100911
  17. SOLU-MEDROL [Concomitant]
     Dates: start: 20100910, end: 20100913
  18. LOXAPINE HCL [Suspect]
     Indication: PSYCHOTIC DISORDER
     Route: 042
     Dates: start: 20100913, end: 20101003
  19. FLAMMAZINE CREAM [Suspect]
     Indication: INFECTION PROPHYLAXIS
     Route: 061
     Dates: start: 20100904, end: 20101003
  20. CELOCURINE [Concomitant]
     Dates: start: 20100902, end: 20100918
  21. BRICANYL [Concomitant]
     Dates: start: 20100913, end: 20100914
  22. LASILEX [Concomitant]
     Dates: start: 20100905, end: 20100915
  23. NEXIUM [Concomitant]
     Dates: start: 20100907, end: 20100910
  24. CLONAZEPAM [Concomitant]
     Dates: start: 20100902, end: 20100903
  25. SECTRAL [Concomitant]
     Dates: start: 20100915, end: 20101003
  26. SUFENTA PRESERVATIVE FREE [Concomitant]
     Dates: start: 20100902, end: 20100918
  27. NORCURON [Concomitant]
     Dates: start: 20100910, end: 20100913
  28. GENTALLINE (GENTAMICINE) [Concomitant]
     Indication: PNEUMONIA
     Route: 042
     Dates: start: 20100914, end: 20100917
  29. GENTAMICIN [Concomitant]
     Dates: start: 20100902, end: 20100918
  30. EFFEXOR [Concomitant]
     Indication: DEPRESSION
     Dosage: ORAL/IV
     Dates: start: 20080101
  31. ERYTHROMYCIN [Concomitant]
     Dates: start: 20100907, end: 20100911
  32. MIDAZOLAM HCL [Concomitant]
     Dates: start: 20100910, end: 20100913
  33. LOVENOX [Concomitant]
     Dates: start: 20100905, end: 20101002

REACTIONS (3)
  - TOXIC EPIDERMAL NECROLYSIS [None]
  - PNEUMONIA [None]
  - SEPTIC SHOCK [None]
